FAERS Safety Report 24819405 (Version 1)
Quarter: 2025Q1

REPORT INFORMATION
  Report Type: Spontaneous
  Country: US (occurrence: US)
  Receive Date: 20250108
  Receipt Date: 20250108
  Transmission Date: 20250409
  Serious: No
  Sender: PFIZER
  Company Number: US-PFIZER INC-202500001660

PATIENT
  Age: 65 Year
  Sex: Female

DRUGS (1)
  1. NURTEC ODT [Suspect]
     Active Substance: RIMEGEPANT SULFATE
     Indication: Migraine
     Dates: start: 202301

REACTIONS (3)
  - Raynaud^s phenomenon [Unknown]
  - Lymphadenopathy [Unknown]
  - Breast pain [Unknown]
